FAERS Safety Report 9553704 (Version 1)
Quarter: 2013Q3

REPORT INFORMATION
  Report Type: Spontaneous
  Country: US (occurrence: US)
  Receive Date: 20130925
  Receipt Date: 20130925
  Transmission Date: 20140515
  Serious: Yes (Other)
  Sender: FDA-Public Use
  Company Number: US-BAYER-2013-115456

PATIENT
  Age: 44 Year
  Sex: Female

DRUGS (1)
  1. GADAVIST [Suspect]
     Indication: NUCLEAR MAGNETIC RESONANCE IMAGING BREAST
     Dosage: 7 ML, ONCE
     Route: 042
     Dates: start: 20130828, end: 20130828

REACTIONS (3)
  - Vomiting [Unknown]
  - Rash generalised [Unknown]
  - Loss of consciousness [Unknown]
